FAERS Safety Report 8422266-3 (Version None)
Quarter: 2012Q2

REPORT INFORMATION
  Report Type: 
  Country: None (occurrence: None)
  Receive Date: 20120323
  Receipt Date: 20110330
  Transmission Date: 20120825
  Serious: Yes (Hospitalization, Other)
  Sender: FDA-Public Use
  Company Number: 163-21880-11033492

PATIENT
  Age: 82 Year
  Sex: Male

DRUGS (4)
  1. REVLIMID [Suspect]
     Indication: LYMPHOMA
     Dosage: SEE IMAGE, PO
     Route: 048
     Dates: start: 20100701
  2. REVLIMID [Suspect]
     Indication: LYMPHOMA
     Dosage: SEE IMAGE, PO
     Route: 048
     Dates: start: 20100201
  3. REVLIMID [Suspect]
     Indication: LYMPHOMA
     Dosage: SEE IMAGE, PO
     Route: 048
     Dates: start: 20100401
  4. REVLIMID [Suspect]
     Indication: LYMPHOMA
     Dosage: SEE IMAGE, PO
     Route: 048
     Dates: start: 20110201

REACTIONS (3)
  - PULMONARY OEDEMA [None]
  - OESOPHAGEAL NEOPLASM [None]
  - DYSPNOEA [None]
